FAERS Safety Report 10470463 (Version 1)
Quarter: 2014Q3

REPORT INFORMATION
  Report Type: Spontaneous
  Country: US (occurrence: None)
  Receive Date: 20140912
  Receipt Date: 20140912
  Transmission Date: 20150326
  Serious: Yes (Other)
  Sender: FDA-Public Use
  Company Number: 2013AP009971

PATIENT
  Age: 59 Year
  Sex: Male

DRUGS (23)
  1. GUAIFENESIN. [Concomitant]
     Active Substance: GUAIFENESIN
  2. TRIAMCINOLONE [Suspect]
     Active Substance: TRIAMCINOLONE
  3. WARFARIN [Concomitant]
     Active Substance: WARFARIN
  4. METOPROLOL TARTRATE. [Concomitant]
     Active Substance: METOPROLOL TARTRATE
  5. AMIODARONE [Concomitant]
     Active Substance: AMIODARONE
  6. CEFALEXIN [Concomitant]
     Active Substance: CEPHALEXIN
  7. SALBUTAMOL W/IPRATROPIUM [Concomitant]
     Active Substance: ALBUTEROL\IPRATROPIUM
  8. PARACETAMOL [Concomitant]
     Active Substance: ACETAMINOPHEN
  9. MILK OF MAGNESIA [Concomitant]
     Active Substance: MAGNESIUM HYDROXIDE
  10. LISINOPRIL. [Concomitant]
     Active Substance: LISINOPRIL
  11. NYSTATIN. [Concomitant]
     Active Substance: NYSTATIN
  12. DIPHENHYDRAMINE [Concomitant]
     Active Substance: DIPHENHYDRAMINE
  13. NYSTOP [Concomitant]
     Active Substance: NYSTATIN
  14. FLUTICASONE PROPIONATE. [Concomitant]
     Active Substance: FLUTICASONE PROPIONATE
  15. ONDANSETRON [Concomitant]
     Active Substance: ONDANSETRON
  16. ESCITALOPRAM OXALATE. [Suspect]
     Active Substance: ESCITALOPRAM OXALATE
     Indication: DEPRESSION
  17. RANITIDINE [Concomitant]
     Active Substance: RANITIDINE\RANITIDINE HYDROCHLORIDE
  18. BISACODYL. [Concomitant]
     Active Substance: BISACODYL
  19. WARFARIN [Concomitant]
     Active Substance: WARFARIN
  20. DIGOXIN. [Concomitant]
     Active Substance: DIGOXIN
  21. FUROSEMIDE. [Concomitant]
     Active Substance: FUROSEMIDE
  22. INSULIN LISPRO [Concomitant]
     Active Substance: INSULIN LISPRO
  23. OMEPRAZOLE. [Concomitant]
     Active Substance: OMEPRAZOLE

REACTIONS (1)
  - Urinary retention [None]
